FAERS Safety Report 9145552 (Version 2)
Quarter: 2013Q1

REPORT INFORMATION
  Report Type: Spontaneous
  Country: US (occurrence: US)
  Receive Date: 20130307
  Receipt Date: 20130308
  Transmission Date: 20140127
  Serious: No
  Sender: FDA-Public Use
  Company Number: US-PFIZER INC-2013077603

PATIENT
  Sex: Male
  Weight: 77.1 kg

DRUGS (2)
  1. SUTENT [Suspect]
     Indication: RENAL CANCER
     Dosage: 50 MG, CYCLIC (50 MG EVERY OTHER DAY FOR THREE WEEKS AND ONE WEEK OFF)
     Dates: start: 201211
  2. NEXIUM [Concomitant]
     Indication: ULCER HAEMORRHAGE
     Dosage: 40 MG, 1X/DAY

REACTIONS (2)
  - Blood pressure increased [Unknown]
  - Blood count abnormal [Unknown]
